FAERS Safety Report 21930857 (Version 1)
Quarter: 2023Q1

REPORT INFORMATION
  Report Type: Spontaneous
  Country: AT (occurrence: AT)
  Receive Date: 20230131
  Receipt Date: 20230131
  Transmission Date: 20230418
  Serious: Yes (Other)
  Sender: FDA-Public Use
  Company Number: None

PATIENT
  Age: 69 Year
  Sex: Female

DRUGS (1)
  1. AVELOX [Suspect]
     Active Substance: MOXIFLOXACIN HYDROCHLORIDE
     Indication: Infection
     Dosage: GEM?SS FACHINFO
     Dates: start: 20220622, end: 20221217

REACTIONS (5)
  - Cyanosis [Unknown]
  - Oxygen saturation decreased [Unknown]
  - Type I hypersensitivity [Unknown]
  - Erythema [Unknown]
  - Dyspnoea [Unknown]

NARRATIVE: CASE EVENT DATE: 20220622
